FAERS Safety Report 7752239-5 (Version None)
Quarter: 2011Q3

REPORT INFORMATION
  Report Type: 
  Country: None (occurrence: None)
  Receive Date: 20110915
  Receipt Date: 20110906
  Transmission Date: 20111222
  Serious: Yes (Hospitalization, Other)
  Sender: FDA-Public Use
  Company Number: US-BAYER-201034347NA

PATIENT
  Age: 41 Year
  Sex: Female
  Weight: 53.968 kg

DRUGS (8)
  1. YASMIN [Suspect]
     Indication: PRODUCT USED FOR UNKNOWN INDICATION
     Route: 048
     Dates: start: 20060501, end: 20080701
  2. YASMIN [Suspect]
     Indication: DYSMENORRHOEA
  3. CARAFATE [Concomitant]
     Dosage: UNK
     Dates: start: 20070101, end: 20070301
  4. DROSPIRENONE AND ETHINYL ESTRADIOL [Suspect]
     Indication: DYSMENORRHOEA
  5. ACETAMINOPHEN [Concomitant]
  6. ONE-A-DAY [VIT C,B12,D2,B3,B6,RETINOL,B2,B1 MONONITR] [Concomitant]
  7. DROSPIRENONE AND ETHINYL ESTRADIOL [Suspect]
     Indication: MENORRHAGIA
     Dosage: UNK
     Dates: start: 20080701, end: 20100301
  8. IRON SUPPLEMENT [Concomitant]
     Dosage: UNK
     Dates: start: 20070101, end: 20070301

REACTIONS (6)
  - ABDOMINAL PAIN UPPER [None]
  - GALLBLADDER DISORDER [None]
  - NAUSEA [None]
  - REFLUX GASTRITIS [None]
  - CHOLECYSTITIS CHRONIC [None]
  - ABDOMINAL PAIN [None]
